FAERS Safety Report 4480551-4 (Version None)
Quarter: 2004Q4

REPORT INFORMATION
  Report Type: 
  Country: None (occurrence: None)
  Receive Date: 20041019
  Receipt Date: 20041007
  Transmission Date: 20050328
  Serious: Yes (Hospitalization)
  Sender: FDA-Public Use
  Company Number: MEDI-0002286

PATIENT
  Age: 48 Year
  Sex: Male

DRUGS (2)
  1. ETHYOL [Suspect]
     Indication: RADIOTHERAPY
     Dosage: 500 MG, SUBCUTANEOUS
     Route: 058
     Dates: start: 20030728, end: 20030807
  2. RADIATION THERAPY [Concomitant]

REACTIONS (2)
  - MUCOSAL INFLAMMATION [None]
  - URTICARIA GENERALISED [None]
